FAERS Safety Report 13372109 (Version 1)
Quarter: 2017Q1

REPORT INFORMATION
  Report Type: Spontaneous
  Country: FR (occurrence: FR)
  Receive Date: 20170327
  Receipt Date: 20170327
  Transmission Date: 20170429
  Serious: Yes (Hospitalization)
  Sender: FDA-Public Use
  Company Number: FR-ROCHE-1910310

PATIENT
  Age: 34 Year
  Sex: Female

DRUGS (20)
  1. AZATHIOPRINE. [Suspect]
     Active Substance: AZATHIOPRINE
     Indication: PRODUCT USED FOR UNKNOWN INDICATION
     Route: 065
     Dates: start: 1999, end: 1999
  2. AMLOR [Concomitant]
     Active Substance: AMLODIPINE BESYLATE
     Route: 065
  3. CALCIDIA [Concomitant]
     Active Substance: CALCIUM POLYCARBOPHIL
     Route: 065
  4. MABTHERA [Suspect]
     Active Substance: RITUXIMAB
     Indication: SYSTEMIC LUPUS ERYTHEMATOSUS
     Route: 065
     Dates: start: 2007, end: 2007
  5. CORTANCYL [Suspect]
     Active Substance: PREDNISONE
     Indication: SYSTEMIC LUPUS ERYTHEMATOSUS
     Route: 048
     Dates: end: 20170121
  6. COUMADIN [Concomitant]
     Active Substance: WARFARIN SODIUM
     Route: 065
  7. UVEDOSE [Concomitant]
     Active Substance: CHOLECALCIFEROL
     Route: 065
  8. VENTOLIN [Concomitant]
     Active Substance: ALBUTEROL SULFATE
  9. XALATAN [Concomitant]
     Active Substance: LATANOPROST
     Route: 065
  10. APROVEL [Concomitant]
     Active Substance: IRBESARTAN
     Route: 065
  11. TARDYFERON (FRANCE) [Concomitant]
     Active Substance: FERROUS SULFATE\GASTRIC MUCIN
     Route: 065
  12. OXYCODONE [Concomitant]
     Active Substance: OXYCODONE
  13. HUMALOG [Concomitant]
     Active Substance: INSULIN LISPRO
  14. CELLCEPT [Suspect]
     Active Substance: MYCOPHENOLATE MOFETIL\MYCOPHENOLATE MOFETIL HYDROCHLORIDE
     Indication: SYSTEMIC LUPUS ERYTHEMATOSUS
     Route: 065
     Dates: start: 2003, end: 2007
  15. MYFORTIC [Suspect]
     Active Substance: MYCOPHENOLATE SODIUM
     Indication: SYSTEMIC LUPUS ERYTHEMATOSUS
     Route: 048
     Dates: start: 2008, end: 20170128
  16. LEVEMIR [Concomitant]
     Active Substance: INSULIN DETEMIR
  17. CYCLOPHOSPHAMIDE. [Suspect]
     Active Substance: CYCLOPHOSPHAMIDE
     Indication: SYSTEMIC LUPUS ERYTHEMATOSUS
     Route: 065
     Dates: start: 1999, end: 1999
  18. SERETIDE [Concomitant]
     Active Substance: FLUTICASONE PROPIONATE\SALMETEROL XINAFOATE
  19. IXPRIM [Concomitant]
     Active Substance: ACETAMINOPHEN\TRAMADOL HYDROCHLORIDE
  20. TEMERIT [Concomitant]
     Active Substance: NEBIVOLOL
     Route: 065

REACTIONS (1)
  - B-cell lymphoma [Not Recovered/Not Resolved]

NARRATIVE: CASE EVENT DATE: 20161215
